FAERS Safety Report 17497113 (Version 1)
Quarter: 2020Q1

REPORT INFORMATION
  Report Type: Spontaneous
  Country: US (occurrence: US)
  Receive Date: 20200304
  Receipt Date: 20200304
  Transmission Date: 20200409
  Serious: Yes (Other)
  Sender: FDA-Public Use
  Company Number: US-009507513-2002USA010008

PATIENT
  Age: 30 Year
  Sex: Female

DRUGS (1)
  1. PREGNYL [Suspect]
     Active Substance: CHORIOGONADOTROPIN ALFA
     Indication: IN VITRO FERTILISATION
     Dosage: IN THE ABDOMEN
     Route: 058
     Dates: start: 20200218

REACTIONS (2)
  - Incorrect route of product administration [Unknown]
  - Ovarian hyperstimulation syndrome [Not Recovered/Not Resolved]

NARRATIVE: CASE EVENT DATE: 20200218
